FAERS Safety Report 9896874 (Version 1)
Quarter: 2014Q1

REPORT INFORMATION
  Report Type: Spontaneous
  Country: CL (occurrence: CL)
  Receive Date: 20140214
  Receipt Date: 20140214
  Transmission Date: 20141002
  Serious: Yes (Other)
  Sender: FDA-Public Use
  Company Number: CL-PFIZER INC-2014036801

PATIENT
  Age: 83 Year
  Sex: Male

DRUGS (2)
  1. XALACOM [Suspect]
     Indication: GLAUCOMA
     Dosage: UNK
     Route: 047
     Dates: start: 2008
  2. XALATAN [Suspect]
     Dosage: UNK
     Dates: start: 2006, end: 2008

REACTIONS (2)
  - Glaucoma [Recovered/Resolved]
  - Reproductive tract disorder [Unknown]
